FAERS Safety Report 22362255 (Version 1)
Quarter: 2023Q2

REPORT INFORMATION
  Report Type: Spontaneous
  Country: US (occurrence: US)
  Receive Date: 20230524
  Receipt Date: 20230524
  Transmission Date: 20230721
  Serious: Yes (Other)
  Sender: FDA-Public Use
  Company Number: US-PFIZER INC-202300197443

PATIENT
  Age: 66 Year
  Sex: Female
  Weight: 73.48 kg

DRUGS (1)
  1. NURTEC ODT [Suspect]
     Active Substance: RIMEGEPANT SULFATE
     Indication: Migraine
     Dosage: 75 MG
     Route: 048
     Dates: start: 2023, end: 20230519

REACTIONS (2)
  - Paralysis [Unknown]
  - Oral infection [Not Recovered/Not Resolved]
